FAERS Safety Report 9598702 (Version 1)
Quarter: 2013Q4

REPORT INFORMATION
  Report Type: Spontaneous
  Country: US (occurrence: US)
  Receive Date: 20131004
  Receipt Date: 20131004
  Transmission Date: 20140711
  Serious: No
  Sender: FDA-Public Use
  Company Number: US-AMGEN-USASP2013025124

PATIENT
  Age: 30 Year
  Sex: Female
  Weight: 122.45 kg

DRUGS (3)
  1. ENBREL [Suspect]
     Indication: PRODUCT USED FOR UNKNOWN INDICATION
     Dosage: 50 MG, 2 TIMES/WK
     Route: 058
  2. FIORICET [Concomitant]
     Dosage: UNK
  3. AMITRIPTYLIN [Concomitant]
     Dosage: 25 MG, UNK

REACTIONS (3)
  - Injection site reaction [Unknown]
  - Injection site warmth [Unknown]
  - Injection site urticaria [Unknown]
